FAERS Safety Report 15918015 (Version 1)
Quarter: 2019Q1

REPORT INFORMATION
  Report Type: Report from Study
  Country: US (occurrence: US)
  Receive Date: 20190205
  Receipt Date: 20190205
  Transmission Date: 20190417
  Serious: Yes (Hospitalization, Other)
  Sender: FDA-Public Use
  Company Number: US-SAKK-2019SA026745AA

PATIENT
  Age: 41 Year
  Sex: Female
  Weight: 125.1 kg

DRUGS (26)
  1. ALEMTUZUMAB [Suspect]
     Active Substance: ALEMTUZUMAB
     Indication: MULTIPLE SCLEROSIS
     Dosage: UNK UNK, QD
     Route: 041
     Dates: start: 20181126, end: 20181128
  2. AMPYRA [Concomitant]
     Active Substance: DALFAMPRIDINE
     Indication: MULTIPLE SCLEROSIS
     Dosage: 10 MG, BID
     Route: 048
  3. HYDRODIURIL [Concomitant]
     Active Substance: HYDROCHLOROTHIAZIDE
     Dosage: 25 MG, QD
     Route: 048
  4. FAMOTIDINE. [Concomitant]
     Active Substance: FAMOTIDINE
     Dosage: 20 MG, QD
     Route: 048
  5. BACLOFEN. [Concomitant]
     Active Substance: BACLOFEN
     Dosage: UNK UNK, PRN
  6. LIORESAL [Concomitant]
     Active Substance: BACLOFEN
     Dosage: 10 MG, TID
     Route: 048
  7. ZYRTEC [Concomitant]
     Active Substance: CETIRIZINE HYDROCHLORIDE
     Dosage: 10 MG, QD
     Route: 048
     Dates: start: 20180212
  8. ZANTAC [Concomitant]
     Active Substance: RANITIDINE HYDROCHLORIDE
     Dosage: 150 MG, BID
     Route: 048
  9. DALFAMPRIDINE. [Concomitant]
     Active Substance: DALFAMPRIDINE
     Dosage: 10 MG, BID
     Route: 048
  10. ZOVIRAX [Concomitant]
     Active Substance: ACYCLOVIR
     Dosage: 400 MG, BID
     Route: 048
  11. TEMAZEPAM. [Concomitant]
     Active Substance: TEMAZEPAM
     Dosage: UNK UNK, PRN
  12. CALCARB [Concomitant]
     Dosage: DOSE:600, QD
     Route: 048
  13. FINACEA [Concomitant]
     Active Substance: AZELAIC ACID
     Dosage: 15 %, QD
     Route: 061
  14. ALEMTUZUMAB [Suspect]
     Active Substance: ALEMTUZUMAB
     Dosage: UNK UNK, QD
     Route: 041
     Dates: start: 20171127, end: 20171201
  15. ZOFRAN [Concomitant]
     Active Substance: ONDANSETRON HYDROCHLORIDE
     Indication: NAUSEA
     Dosage: 8 MG, Q8H
     Route: 048
  16. LEXAPRO [Concomitant]
     Active Substance: ESCITALOPRAM OXALATE
     Dosage: 10 MG, QD
     Route: 048
  17. ESCITALOPRAM [Concomitant]
     Active Substance: ESCITALOPRAM OXALATE
     Dosage: 20 MG, QD
     Route: 048
  18. ONDANSETRON [Concomitant]
     Active Substance: ONDANSETRON
     Dosage: UNK UNK, PRN
  19. BIOTIN [Concomitant]
     Active Substance: BIOTIN
     Dosage: 5000 UG, QD
     Route: 048
  20. TYLENOL [Concomitant]
     Active Substance: ACETAMINOPHEN
     Dosage: 500 MG, UNK
     Route: 048
  21. HYDROCHLOROTHIAZID [Concomitant]
     Active Substance: HYDROCHLOROTHIAZIDE
     Indication: HYPERTENSION
     Dosage: 25 MG, UNK
     Route: 048
  22. SOLU-MEDROL [Concomitant]
     Active Substance: METHYLPREDNISOLONE SODIUM SUCCINATE
     Dosage: UNK UNK, UNK
     Route: 042
     Dates: start: 20181126, end: 20181127
  23. METRONIDAZOLE. [Concomitant]
     Active Substance: METRONIDAZOLE
     Dosage: 0.75 %
     Route: 061
  24. MOTRIN [Concomitant]
     Active Substance: IBUPROFEN
     Dosage: 200 MG, Q4H
     Route: 048
  25. RESTORIL [TEMAZEPAM] [Concomitant]
     Dosage: 15 MG, PRN
     Route: 048
  26. ZOFRAN [Concomitant]
     Active Substance: ONDANSETRON HYDROCHLORIDE
     Indication: VOMITING

REACTIONS (22)
  - Chest discomfort [Recovered/Resolved]
  - Dyspnoea [Recovered/Resolved]
  - Neutrophil percentage increased [Unknown]
  - Lymphocyte count decreased [Unknown]
  - Gastrooesophageal reflux disease [Unknown]
  - Alveolitis [Unknown]
  - Stress [Unknown]
  - Blood pressure increased [Unknown]
  - Brain natriuretic peptide increased [Unknown]
  - Fibrin D dimer increased [Unknown]
  - Lymphocyte percentage decreased [Unknown]
  - Pulmonary alveolar haemorrhage [Unknown]
  - Pneumonia [Unknown]
  - Haemoptysis [Recovered/Resolved]
  - Computerised tomogram thorax abnormal [Recovered/Resolved]
  - Blood calcium decreased [Unknown]
  - Mean platelet volume decreased [Unknown]
  - Oedema peripheral [Unknown]
  - Cough [Recovered/Resolved]
  - Basophil percentage increased [Unknown]
  - Sinus tachycardia [Unknown]
  - Insomnia [Unknown]

NARRATIVE: CASE EVENT DATE: 20181130
